FAERS Safety Report 15838728 (Version 2)
Quarter: 2019Q1

REPORT INFORMATION
  Report Type: Spontaneous
  Country: FI (occurrence: FI)
  Receive Date: 20190117
  Receipt Date: 20190204
  Transmission Date: 20190417
  Serious: Yes (Death, Hospitalization)
  Sender: FDA-Public Use
  Company Number: PHHY2019FI009341

PATIENT
  Age: 46 Year
  Sex: Female

DRUGS (2)
  1. DANAPAROID [Suspect]
     Active Substance: DANAPAROID
     Indication: BRAIN OEDEMA
     Dosage: 325 U, BID
     Route: 065
  2. ARGATROBAN. [Suspect]
     Active Substance: ARGATROBAN
     Indication: HEPARIN-INDUCED THROMBOCYTOPENIA
     Dosage: 10 MG/HR INFUSION
     Route: 042

REACTIONS (7)
  - Cerebral infarction [Fatal]
  - Respiratory failure [Fatal]
  - Platelet count abnormal [Unknown]
  - Cerebellar haemorrhage [Fatal]
  - Neurological decompensation [Unknown]
  - Circulatory collapse [Fatal]
  - Subarachnoid haemorrhage [Fatal]
